FAERS Safety Report 23885185 (Version 1)
Quarter: 2024Q2

REPORT INFORMATION
  Report Type: Other
  Country: FR (occurrence: FR)
  Receive Date: 20240522
  Receipt Date: 20240522
  Transmission Date: 20240717
  Serious: Yes (Hospitalization)
  Sender: FDA-Public Use
  Company Number: FR-Appco Pharma LLC-2157289

PATIENT
  Age: 41 Year
  Sex: Male

DRUGS (3)
  1. BACLOFEN [Suspect]
     Active Substance: BACLOFEN
     Indication: Alcohol use disorder
     Route: 065
  2. METHADONE [Suspect]
     Active Substance: METHADONE HYDROCHLORIDE
     Route: 065
  3. PAROXETINE [Suspect]
     Active Substance: PAROXETINE
     Route: 065

REACTIONS (10)
  - Intentional overdose [Unknown]
  - Off label use [Unknown]
  - Substance use disorder [Unknown]
  - Withdrawal syndrome [Unknown]
  - Tinnitus [Unknown]
  - Vertigo [Unknown]
  - Malaise [Unknown]
  - Somnolence [Unknown]
  - Headache [Unknown]
  - Drug dependence [Unknown]
